FAERS Safety Report 7457342-5 (Version None)
Quarter: 2011Q2

REPORT INFORMATION
  Report Type: 
  Country: None (occurrence: None)
  Receive Date: 20110504
  Receipt Date: 20100610
  Transmission Date: 20111010
  Serious: No
  Sender: FDA-Public Use
  Company Number: US-KINGPHARMUSA00001-K201000734

PATIENT
  Sex: Male

DRUGS (1)
  1. AVINZA [Suspect]
     Dosage: 75 MG, BID
     Dates: start: 20070101

REACTIONS (3)
  - PANIC ATTACK [None]
  - ANXIETY [None]
  - DRUG EFFECT DECREASED [None]
